FAERS Safety Report 10595044 (Version 2)
Quarter: 2014Q4

REPORT INFORMATION
  Report Type: Report from Study
  Country: FR (occurrence: FR)
  Receive Date: 20141120
  Receipt Date: 20141212
  Transmission Date: 20150529
  Serious: No
  Sender: FDA-Public Use
  Company Number: PHHY2014FR149951

PATIENT
  Age: 59 Year
  Sex: Male

DRUGS (2)
  1. TASIGNA [Suspect]
     Active Substance: NILOTINIB
     Indication: CHRONIC MYELOID LEUKAEMIA
     Dosage: 900 MG, QD (6 X 150MG/DAY)
     Route: 065
     Dates: start: 201303
  2. TASIGNA [Suspect]
     Active Substance: NILOTINIB
     Indication: OFF LABEL USE

REACTIONS (1)
  - Overdose [Recovering/Resolving]
